FAERS Safety Report 12587447 (Version 1)
Quarter: 2016Q3

REPORT INFORMATION
  Report Type: Not Available
  Country: None (occurrence: RO)
  Receive Date: 20160725
  Receipt Date: 20160725
  Transmission Date: 20161109
  Serious: Yes (Hospitalization)
  Sender: FDA-Public Use
  Company Number: RO-AKORN-35578

PATIENT
  Age: 64 Year
  Sex: Male

DRUGS (1)
  1. SULFAMETHOXAZOLE + TRIMETHOPRIM ORAL SUSPENSION USP [Suspect]
     Active Substance: SULFAMETHOXAZOLE\TRIMETHOPRIM

REACTIONS (12)
  - Myoglobin urine [None]
  - Rhabdomyolysis [None]
  - Blood lactate dehydrogenase [None]
  - Chromaturia [None]
  - Oliguria [None]
  - Acidosis [None]
  - Walking disability [None]
  - Polymyositis [None]
  - Hyperuricaemia [None]
  - Transaminases abnormal [None]
  - Pain in extremity [None]
  - Hyponatraemia [None]
